FAERS Safety Report 11105608 (Version 1)
Quarter: 2015Q2

REPORT INFORMATION
  Report Type: Spontaneous
  Country: US (occurrence: US)
  Receive Date: 20150512
  Receipt Date: 20150512
  Transmission Date: 20150821
  Serious: Yes (Other)
  Sender: FDA-Public Use
  Company Number: US-BEH-2015050927

PATIENT
  Age: 87 Year
  Sex: Female

DRUGS (1)
  1. CARIMUNE NF [Suspect]
     Active Substance: HUMAN IMMUNOGLOBULIN G
     Indication: PRODUCT USED FOR UNKNOWN INDICATION
     Dosage: RECEIVED ON ??-APR-2015

REACTIONS (2)
  - Hepatic enzyme increased [Recovered/Resolved]
  - Renal function test abnormal [Recovering/Resolving]

NARRATIVE: CASE EVENT DATE: 20150404
